FAERS Safety Report 4717870-X (Version None)
Quarter: 2005Q3

REPORT INFORMATION
  Report Type: 
  Country: None (occurrence: None)
  Receive Date: 20050718
  Receipt Date: 20050718
  Transmission Date: 20060218
  Serious: Yes (Hospitalization)
  Sender: FDA-Public Use
  Company Number: None

PATIENT
  Sex: Female
  Weight: 61.1 kg

DRUGS (9)
  1. WARFARIN    2MG   DUPONT [Suspect]
     Indication: ATRIAL FIBRILLATION
     Dosage: 4MG/2MG   M+TH/RO W   ORAL
     Route: 048
     Dates: start: 19940201, end: 20050518
  2. DIGOXIN [Concomitant]
  3. METOPROLOL [Concomitant]
  4. POTASSIUM CHLORIDE [Concomitant]
  5. FUROSEMIDE [Concomitant]
  6. CALCIUM 500MG/ VITAMIN D 200 UNITS [Concomitant]
  7. GABAPENTIN [Concomitant]
  8. M.V.I. [Concomitant]
  9. TRIAMCINOLONE [Concomitant]

REACTIONS (11)
  - ABDOMINAL DISCOMFORT [None]
  - BLOOD PRESSURE DECREASED [None]
  - DYSPNOEA [None]
  - EPISTAXIS [None]
  - FAECES DISCOLOURED [None]
  - HAEMATOCRIT DECREASED [None]
  - HAEMORRHAGE [None]
  - INTERNATIONAL NORMALISED RATIO INCREASED [None]
  - OXYGEN SATURATION DECREASED [None]
  - REFUSAL OF TREATMENT BY PATIENT [None]
  - THROMBOSIS [None]
